FAERS Safety Report 6428897-4 (Version None)
Quarter: 2009Q4

REPORT INFORMATION
  Report Type: 
  Country: None (occurrence: None)
  Receive Date: 20091104
  Receipt Date: 20091104
  Transmission Date: 20100525
  Serious: No
  Sender: FDA-Public Use
  Company Number: None

PATIENT
  Age: 74 Year
  Sex: Male
  Weight: 69.4003 kg

DRUGS (1)
  1. FLAGYL [Suspect]
     Indication: DIVERTICULITIS
     Dosage: 500 MG, 4 EA PER DAY
     Dates: start: 20090909, end: 20091013

REACTIONS (4)
  - HYPOAESTHESIA [None]
  - MUSCULAR WEAKNESS [None]
  - NERVE INJURY [None]
  - PARAESTHESIA [None]
